FAERS Safety Report 10234846 (Version 2)
Quarter: 2014Q3

REPORT INFORMATION
  Report Type: Spontaneous
  Country: US (occurrence: None)
  Receive Date: 20140516
  Receipt Date: 20140815
  Transmission Date: 20150326
  Serious: No
  Sender: FDA-Public Use
  Company Number: E2007-01588-SPO-US

PATIENT
  Age: 27 Year
  Sex: Male
  Weight: 69 kg

DRUGS (4)
  1. LEVETIRACETAM (LEVETIRACETAM) [Concomitant]
     Active Substance: LEVETIRACETAM
  2. VIMPAT (LACOSAMIDE) (LACOSAMIDE) [Concomitant]
  3. CLOBAZAM [Concomitant]
     Active Substance: CLOBAZAM
  4. FYCOMPA [Suspect]
     Active Substance: PERAMPANEL
     Indication: EPILEPSY
     Dosage: 1 IN 1 D
     Route: 048
     Dates: start: 20140307, end: 201403

REACTIONS (6)
  - Hypoaesthesia [None]
  - Dry mouth [None]
  - Paraesthesia [None]
  - Ageusia [None]
  - Hypoaesthesia oral [None]
  - Skin sensitisation [None]

NARRATIVE: CASE EVENT DATE: 20140317
